FAERS Safety Report 24594957 (Version 1)
Quarter: 2024Q4

REPORT INFORMATION
  Report Type: Spontaneous
  Country: JP (occurrence: JP)
  Receive Date: 20241108
  Receipt Date: 20241108
  Transmission Date: 20250115
  Serious: Yes (Hospitalization)
  Sender: KYOWA
  Company Number: JP-KYOWA KIRIN , INC.-2024KK023333

PATIENT

DRUGS (1)
  1. POTELIGEO [Suspect]
     Active Substance: MOGAMULIZUMAB-KPKC
     Indication: Peripheral T-cell lymphoma unspecified
     Dosage: 60 MG, SINGLE
     Route: 041
     Dates: start: 20240913, end: 20240913

REACTIONS (1)
  - Skin disorder [Recovering/Resolving]

NARRATIVE: CASE EVENT DATE: 20240914
